FAERS Safety Report 12494597 (Version 3)
Quarter: 2016Q3

REPORT INFORMATION
  Report Type: Spontaneous
  Country: US (occurrence: US)
  Receive Date: 20160624
  Receipt Date: 20160729
  Transmission Date: 20161109
  Serious: Yes (Hospitalization, Other)
  Sender: FDA-Public Use
  Company Number: US-009507513-1606USA008022

PATIENT
  Age: 51 Year
  Sex: Female
  Weight: 139.68 kg

DRUGS (1)
  1. JANUMET [Suspect]
     Active Substance: METFORMIN HYDROCHLORIDE\SITAGLIPTIN PHOSPHATE
     Dosage: 50/500 MG, UNKNOWN
     Route: 048
     Dates: end: 20160615

REACTIONS (18)
  - Hiatus hernia [Unknown]
  - Hepatic steatosis [Unknown]
  - Blood creatinine decreased [Unknown]
  - Hepatic cyst [Unknown]
  - Amylase decreased [Unknown]
  - Blood glucose increased [Unknown]
  - Red blood cell count increased [Unknown]
  - Red blood cell sedimentation rate increased [Unknown]
  - Blood urea decreased [Unknown]
  - Pancreatitis [Not Recovered/Not Resolved]
  - Monocyte count increased [Unknown]
  - Eosinophil count increased [Unknown]
  - Blood osmolarity decreased [Unknown]
  - Diverticulum [Unknown]
  - Spinal osteoarthritis [Unknown]
  - Hypotension [Unknown]
  - Glycosylated haemoglobin increased [Unknown]
  - Splenomegaly [Unknown]

NARRATIVE: CASE EVENT DATE: 20160613
